FAERS Safety Report 4453225-3 (Version None)
Quarter: 2004Q3

REPORT INFORMATION
  Report Type: 
  Country: None (occurrence: None)
  Receive Date: 20040901
  Receipt Date: 20040618
  Transmission Date: 20050211
  Serious: Yes (Other)
  Sender: FDA-Public Use
  Company Number: US080251

PATIENT
  Age: 86 Year
  Sex: Female

DRUGS (4)
  1. ENBREL [Suspect]
     Indication: RHEUMATOID ARTHRITIS
     Dosage: 25 MG, 1 IN 1 WEEKS, SC
     Route: 058
     Dates: start: 19981201, end: 20010601
  2. PREDNISONE [Concomitant]
  3. METHOTREXATE [Concomitant]
  4. REMICADE [Concomitant]

REACTIONS (1)
  - NON-HODGKIN'S LYMPHOMA [None]
